FAERS Safety Report 8966411 (Version 5)
Quarter: 2013Q4

REPORT INFORMATION
  Report Type: Report from Study
  Country: JP (occurrence: JP)
  Receive Date: 20121214
  Receipt Date: 20131230
  Transmission Date: 20140711
  Serious: Yes (Hospitalization)
  Sender: FDA-Public Use
  Company Number: JP-GLAXOSMITHKLINE-B0850966A

PATIENT
  Age: 73 Year
  Sex: Male
  Weight: 53 kg

DRUGS (37)
  1. REVOLADE [Suspect]
     Indication: IMMUNE THROMBOCYTOPENIC PURPURA
     Route: 048
     Dates: start: 20121101, end: 20121114
  2. REVOLADE [Suspect]
     Indication: IMMUNE THROMBOCYTOPENIC PURPURA
     Route: 048
     Dates: start: 20121115, end: 20130724
  3. REVOLADE [Suspect]
     Indication: IMMUNE THROMBOCYTOPENIC PURPURA
     Route: 048
     Dates: start: 20130725, end: 20130822
  4. REVOLADE [Suspect]
     Indication: IMMUNE THROMBOCYTOPENIC PURPURA
     Route: 048
     Dates: start: 20130823
  5. BAKTAR [Concomitant]
     Indication: PROPHYLAXIS
     Route: 048
     Dates: end: 20130307
  6. BAKTAR [Concomitant]
     Indication: PROPHYLAXIS
     Route: 048
     Dates: start: 20130815, end: 20131031
  7. TAKEPRON [Concomitant]
     Route: 048
  8. PREDNISOLONE [Concomitant]
     Indication: IMMUNE THROMBOCYTOPENIC PURPURA
     Route: 048
     Dates: end: 20130117
  9. PREDNISOLONE [Concomitant]
     Indication: IMMUNE THROMBOCYTOPENIC PURPURA
     Route: 048
     Dates: start: 20130118, end: 20130207
  10. PREDNISOLONE [Concomitant]
     Indication: IMMUNE THROMBOCYTOPENIC PURPURA
     Route: 048
     Dates: start: 20130208, end: 20130307
  11. PREDNISOLONE [Concomitant]
     Indication: IMMUNE THROMBOCYTOPENIC PURPURA
     Route: 048
     Dates: start: 20130308, end: 20130314
  12. PREDNISOLONE [Concomitant]
     Indication: IMMUNE THROMBOCYTOPENIC PURPURA
     Route: 048
     Dates: start: 20130315, end: 20130404
  13. PREDNISOLONE [Concomitant]
     Indication: IMMUNE THROMBOCYTOPENIC PURPURA
     Route: 048
     Dates: start: 20130405, end: 20130502
  14. PREDNISOLONE [Concomitant]
     Indication: IMMUNE THROMBOCYTOPENIC PURPURA
     Route: 048
     Dates: start: 20130503, end: 20130619
  15. PREDNISOLONE [Concomitant]
     Indication: IMMUNE THROMBOCYTOPENIC PURPURA
     Route: 048
     Dates: start: 20130620, end: 20130703
  16. PREDNISOLONE [Concomitant]
     Indication: IMMUNE THROMBOCYTOPENIC PURPURA
     Route: 048
     Dates: start: 20130704, end: 20130717
  17. PREDNISOLONE [Concomitant]
     Indication: IMMUNE THROMBOCYTOPENIC PURPURA
     Route: 048
     Dates: start: 20130718, end: 20130814
  18. PREDNISOLONE [Concomitant]
     Indication: IMMUNE THROMBOCYTOPENIC PURPURA
     Route: 048
     Dates: start: 20130815, end: 20130822
  19. PREDNISOLONE [Concomitant]
     Indication: IMMUNE THROMBOCYTOPENIC PURPURA
     Route: 048
     Dates: start: 20130823, end: 20130904
  20. PREDNISOLONE [Concomitant]
     Indication: IMMUNE THROMBOCYTOPENIC PURPURA
     Route: 048
     Dates: start: 20130905, end: 20131002
  21. PREDNISOLONE [Concomitant]
     Indication: IMMUNE THROMBOCYTOPENIC PURPURA
     Route: 048
     Dates: start: 20131003, end: 20131010
  22. PREDNISOLONE [Concomitant]
     Indication: IMMUNE THROMBOCYTOPENIC PURPURA
     Route: 048
     Dates: start: 20131011, end: 20131017
  23. PREDNISOLONE [Concomitant]
     Indication: IMMUNE THROMBOCYTOPENIC PURPURA
     Route: 048
     Dates: start: 20131018, end: 20131031
  24. BONALON [Concomitant]
     Indication: PROPHYLAXIS
     Route: 048
  25. MYSLEE [Concomitant]
     Indication: PROPHYLAXIS
     Route: 048
  26. PURSENNID [Concomitant]
     Indication: PROPHYLAXIS
     Route: 048
  27. MAINTATE [Concomitant]
     Route: 048
     Dates: end: 20121211
  28. MAINTATE [Concomitant]
     Route: 048
     Dates: start: 20121212
  29. ALDACTONE A [Concomitant]
     Route: 048
     Dates: start: 20121212
  30. MEVALOTIN [Concomitant]
     Route: 048
     Dates: start: 20130117, end: 20130619
  31. FUROSEMIDE [Concomitant]
     Route: 048
     Dates: start: 20121221, end: 20130206
  32. FUROSEMIDE [Concomitant]
     Route: 048
     Dates: start: 20130207, end: 20130918
  33. FUROSEMIDE [Concomitant]
     Route: 048
     Dates: start: 20130919
  34. LANOXIN [Concomitant]
     Route: 048
     Dates: start: 20121228
  35. ASPARA POTASSIUM [Concomitant]
     Route: 048
     Dates: start: 20130620, end: 20131031
  36. TANATRIL [Concomitant]
     Route: 048
     Dates: start: 20130502
  37. LIPITOR [Concomitant]
     Route: 048
     Dates: start: 20130828

REACTIONS (2)
  - Cardiac failure chronic [Recovered/Resolved]
  - Immune thrombocytopenic purpura [Recovering/Resolving]
